FAERS Safety Report 14250538 (Version 1)
Quarter: 2017Q4

REPORT INFORMATION
  Report Type: Spontaneous
  Country: FR (occurrence: FR)
  Receive Date: 20171205
  Receipt Date: 20171205
  Transmission Date: 20180321
  Serious: Yes (Other)
  Sender: FDA-Public Use
  Company Number: FR-MERCK KGAA-2036636

PATIENT
  Age: 68 Year
  Sex: Female

DRUGS (1)
  1. NOVOTHYROX [Suspect]
     Active Substance: LEVOTHYROXINE SODIUM
     Indication: HYPOTHYROIDISM
     Route: 048
     Dates: start: 20170608, end: 20171031

REACTIONS (12)
  - Constipation [Recovering/Resolving]
  - Visual impairment [Recovering/Resolving]
  - Muscular weakness [Recovering/Resolving]
  - Gastrointestinal motility disorder [Recovering/Resolving]
  - Erysipelas [Recovering/Resolving]
  - Insomnia [Recovering/Resolving]
  - Diarrhoea [Recovering/Resolving]
  - Memory impairment [Recovering/Resolving]
  - Fatigue [Recovering/Resolving]
  - Face oedema [Recovering/Resolving]
  - Diffuse alopecia [Recovering/Resolving]
  - Temperature regulation disorder [Recovering/Resolving]

NARRATIVE: CASE EVENT DATE: 201706
